FAERS Safety Report 16623328 (Version 3)
Quarter: 2019Q4

REPORT INFORMATION
  Report Type: Report from Study
  Country: DE (occurrence: DE)
  Receive Date: 20190723
  Receipt Date: 20191009
  Transmission Date: 20200122
  Serious: Yes (Life-Threatening)
  Sender: FDA-Public Use
  Company Number: DE-PFIZER INC-2019312750

PATIENT
  Age: 77 Year
  Sex: Female

DRUGS (13)
  1. METHOTREXATE SODIUM. [Suspect]
     Active Substance: METHOTREXATE SODIUM
     Dosage: 20 MG, WEEKLY
  2. VIGANTOLETTEN [Concomitant]
     Active Substance: CHOLECALCIFEROL
  3. PREDNISOLON [Concomitant]
     Active Substance: PREDNISOLONE
  4. MICARDIS [Concomitant]
     Active Substance: TELMISARTAN
  5. PANTOPRAZOL [Concomitant]
     Active Substance: PANTOPRAZOLE SODIUM
  6. TOREM [Concomitant]
     Active Substance: TORSEMIDE
  7. FOLIC ACID. [Concomitant]
     Active Substance: FOLIC ACID
  8. NO SUBJECT DRUG [Suspect]
     Active Substance: UNSPECIFIED INGREDIENT
     Dosage: NO DOSE GIVEN
  9. XELJANZ [Suspect]
     Active Substance: TOFACITINIB CITRATE
     Dosage: 10 MG, UNK
     Dates: end: 20190423
  10. NOVAMINSULFON [Concomitant]
     Active Substance: METAMIZOLE
  11. SIMVASTATIN. [Concomitant]
     Active Substance: SIMVASTATIN
  12. ELIQUIS [Concomitant]
     Active Substance: APIXABAN
  13. METOPROLOL. [Concomitant]
     Active Substance: METOPROLOL

REACTIONS (1)
  - Lymphopenia [Unknown]

NARRATIVE: CASE EVENT DATE: 20190423
